FAERS Safety Report 10890301 (Version 2)
Quarter: 2015Q2

REPORT INFORMATION
  Report Type: Spontaneous
  Country: US (occurrence: US)
  Receive Date: 20150305
  Receipt Date: 20150514
  Transmission Date: 20150821
  Serious: Yes (Hospitalization)
  Sender: FDA-Public Use
  Company Number: US-PFIZER INC-2015076603

PATIENT
  Age: 57 Year
  Sex: Female
  Weight: 88 kg

DRUGS (19)
  1. OMEPRAZOLE. [Concomitant]
     Active Substance: OMEPRAZOLE
     Indication: GASTROOESOPHAGEAL REFLUX DISEASE
     Dosage: 40 MG, 2X/DAY
     Dates: start: 2000
  2. XANAX [Concomitant]
     Active Substance: ALPRAZOLAM
     Indication: RESTLESS LEGS SYNDROME
     Dosage: 1 MG, UNK
     Dates: start: 1978
  3. PRAZOSIN [Concomitant]
     Active Substance: PRAZOSIN
     Indication: SLEEP TERROR
     Dosage: 2 MG, 1X/DAY (AT BEDTIME)
  4. SEREVENT DISKUS [Concomitant]
     Active Substance: SALMETEROL XINAFOATE
     Indication: ASTHMA
     Dosage: UNK
     Route: 055
  5. GLIMEPIRIDE. [Concomitant]
     Active Substance: GLIMEPIRIDE
     Indication: DIABETES MELLITUS
     Dosage: 0.5 MG, 1X/DAY (AT DINNER)
     Dates: start: 2008
  6. LASIX [Concomitant]
     Active Substance: FUROSEMIDE
     Indication: OEDEMA
     Dosage: 40 MG, 1X/DAY
     Dates: start: 2004
  7. GABAPENTIN. [Concomitant]
     Active Substance: GABAPENTIN
     Indication: MUSCLE TWITCHING
     Dosage: 600 MG, 3X/DAY
     Dates: start: 2014
  8. NORCO [Concomitant]
     Active Substance: ACETAMINOPHEN\HYDROCODONE BITARTRATE
     Indication: ARTHRITIS
     Dosage: 10-325 MG, 2 TABLETS EVERY 4-6 HRS AS NEEDED
     Dates: start: 2014
  9. AROMASIN [Suspect]
     Active Substance: EXEMESTANE
     Indication: BREAST CANCER STAGE II
     Dosage: 25 MG, DAILY
     Dates: start: 201101
  10. POTASSIUM [Concomitant]
     Active Substance: POTASSIUM
     Dosage: 30 MEQ, 1X/DAY (IN THE MORNING)
     Dates: start: 2004
  11. NORCO [Concomitant]
     Active Substance: ACETAMINOPHEN\HYDROCODONE BITARTRATE
     Indication: MUSCLE TWITCHING
  12. FLOVENT [Concomitant]
     Active Substance: FLUTICASONE PROPIONATE
     Indication: ASTHMA
     Dosage: UNK
     Route: 055
  13. GABAPENTIN. [Concomitant]
     Active Substance: GABAPENTIN
     Indication: RESTLESS LEGS SYNDROME
  14. SOMA [Concomitant]
     Active Substance: CARISOPRODOL
     Dosage: 350 MG, AS NEEDED (2X/DAY)
     Dates: start: 2000
  15. ALBUTEROL. [Concomitant]
     Active Substance: ALBUTEROL
     Indication: ASTHMA
     Dosage: UNK, AS NEEDED
  16. DILAUDID [Concomitant]
     Active Substance: HYDROMORPHONE HYDROCHLORIDE
     Dosage: 8 MG, EVERY 3 HOURS
  17. LEVSIN [Concomitant]
     Active Substance: HYOSCYAMINE SULFATE
     Indication: OESOPHAGEAL SPASM
     Dosage: 0.125 MG, AS NEEDED (3X/DAY)
     Route: 060
     Dates: start: 1998
  18. PRISTIQ EXTENDED RELEASE [Concomitant]
     Active Substance: DESVENLAFAXINE SUCCINATE
     Indication: DEPRESSION
     Dosage: 50 MG, 1X/DAY
     Dates: start: 2014
  19. XANAX [Concomitant]
     Active Substance: ALPRAZOLAM
     Indication: POST-TRAUMATIC STRESS DISORDER

REACTIONS (6)
  - Dyspnoea [Unknown]
  - Ear congestion [Not Recovered/Not Resolved]
  - Vomiting [Unknown]
  - Memory impairment [Not Recovered/Not Resolved]
  - Rhinitis [Not Recovered/Not Resolved]
  - Upper respiratory tract infection [Not Recovered/Not Resolved]

NARRATIVE: CASE EVENT DATE: 2011
